FAERS Safety Report 11882159 (Version 1)
Quarter: 2015Q4

REPORT INFORMATION
  Report Type: Spontaneous
  Country: None (occurrence: None)
  Receive Date: 20151230
  Receipt Date: 20151230
  Transmission Date: 20160305
  Serious: No
  Sender: FDA-Public Use
  Company Number: None

PATIENT
  Age: 39 Year
  Sex: Female
  Weight: 68.04 kg

DRUGS (3)
  1. INHALER [Concomitant]
     Active Substance: UNSPECIFIED INGREDIENT
  2. AFRIN [Suspect]
     Active Substance: OXYMETAZOLINE
     Indication: NASOPHARYNGITIS
     Route: 055
     Dates: start: 20151225, end: 20151228
  3. AFRIN [Suspect]
     Active Substance: OXYMETAZOLINE
     Indication: INFLUENZA
     Route: 055
     Dates: start: 20151225, end: 20151228

REACTIONS (2)
  - Feeling jittery [None]
  - Hypoaesthesia oral [None]

NARRATIVE: CASE EVENT DATE: 20151228
